FAERS Safety Report 7151396-1 (Version None)
Quarter: 2010Q4

REPORT INFORMATION
  Report Type: 
  Country: None (occurrence: None)
  Receive Date: 20101210
  Receipt Date: 20101130
  Transmission Date: 20110411
  Serious: Yes (Life-Threatening)
  Sender: FDA-Public Use
  Company Number: JP-MERCK-1012USA01289

PATIENT
  Age: 46 Year
  Sex: Male

DRUGS (2)
  1. COSOPT [Suspect]
     Indication: OCULAR HYPERTENSION
     Route: 047
  2. COSOPT [Suspect]
     Indication: MYELODYSPLASTIC SYNDROME
     Route: 047

REACTIONS (2)
  - BRADYCARDIA [None]
  - ELECTROCARDIOGRAM QT PROLONGED [None]
